FAERS Safety Report 4759201-5 (Version None)
Quarter: 2005Q3

REPORT INFORMATION
  Report Type: 
  Country: None (occurrence: None)
  Receive Date: 20050901
  Receipt Date: 20050824
  Transmission Date: 20060218
  Serious: Yes (Other)
  Sender: FDA-Public Use
  Company Number: PHBS2005CO12465

PATIENT
  Age: 50 Year
  Sex: Male

DRUGS (4)
  1. ZOMETA [Suspect]
     Indication: METASTASES TO BONE
     Dosage: 4 MG, QMO
     Route: 042
     Dates: start: 20050220, end: 20050720
  2. ACETAMINOPHEN W/ CODEINE [Concomitant]
     Indication: PAIN
  3. PREDNISONE TAB [Concomitant]
  4. RADIOTHERAPY [Concomitant]

REACTIONS (3)
  - PAIN IN JAW [None]
  - PARAESTHESIA [None]
  - PARESIS [None]
